FAERS Safety Report 24288767 (Version 1)
Quarter: 2024Q3

REPORT INFORMATION
  Report Type: Spontaneous
  Country: US (occurrence: None)
  Receive Date: 20240906
  Receipt Date: 20240906
  Transmission Date: 20241017
  Serious: No
  Sender: ASTRAZENECA
  Company Number: 2024A195480

PATIENT
  Sex: Male

DRUGS (2)
  1. BUDESONIDE\FORMOTEROL [Suspect]
     Active Substance: BUDESONIDE\FORMOTEROL
     Dosage: UNKNOWN DOSE AND FREQUENCY UNKNOWN
     Route: 055
  2. SYMBICORT [Suspect]
     Active Substance: BUDESONIDE\FORMOTEROL FUMARATE DIHYDRATE
     Dosage: 160 UG/INHAL, UNKNOWN UNKNOWN
     Route: 055

REACTIONS (5)
  - Pulmonary congestion [Unknown]
  - Wheezing [Unknown]
  - Cough [Unknown]
  - Throat irritation [Unknown]
  - Drug effect less than expected [Unknown]
